FAERS Safety Report 6120434-7 (Version None)
Quarter: 2009Q1

REPORT INFORMATION
  Report Type: 
  Country: None (occurrence: None)
  Receive Date: 20090316
  Receipt Date: 20090316
  Transmission Date: 20090719
  Serious: Yes (Other)
  Sender: FDA-Public Use
  Company Number: None

PATIENT
  Age: 39 Year
  Sex: Female

DRUGS (2)
  1. METRONIDAZOLE [Suspect]
     Indication: INFECTION
     Dosage: 500 PO BID 3 DOSES
     Route: 048
     Dates: start: 20090226
  2. LIDOCAINE HCL VISCOUS [Suspect]
     Indication: OROPHARYNGEAL PAIN
     Dosage: 1 TBSPN BID 3 DOSES
     Dates: start: 20090226

REACTIONS (4)
  - ANXIETY [None]
  - FLUSHING [None]
  - IRRITABILITY [None]
  - TACHYCARDIA [None]
